FAERS Safety Report 20195935 (Version 1)
Quarter: 2021Q4

REPORT INFORMATION
  Report Type: Report from Study
  Country: KR (occurrence: None)
  Receive Date: 20211216
  Receipt Date: 20211216
  Transmission Date: 20220303
  Serious: Yes (Hospitalization)
  Sender: FDA-Public Use
  Company Number: KR-Eisai Medical Research-EC-2021-104793

PATIENT
  Age: 74 Year
  Sex: Female
  Weight: 46.3 kg

DRUGS (12)
  1. LENVIMA [Suspect]
     Active Substance: LENVATINIB
     Indication: Hepatocellular carcinoma
     Route: 048
     Dates: start: 20190806, end: 20190905
  2. LENVIMA [Suspect]
     Active Substance: LENVATINIB
     Route: 048
     Dates: start: 20190910, end: 20191106
  3. PREDNISOLONE [Concomitant]
     Active Substance: PREDNISOLONE
     Indication: Rheumatoid arthritis
     Route: 048
     Dates: start: 20190802
  4. CLOSONE [Concomitant]
     Indication: Angina pectoris
     Route: 048
     Dates: start: 20190802
  5. ALDACTONE [Concomitant]
     Active Substance: SPIRONOLACTONE
     Indication: Angina pectoris
     Route: 048
     Dates: start: 20190802
  6. EZETIMIBE\ROSUVASTATIN [Concomitant]
     Active Substance: EZETIMIBE\ROSUVASTATIN
     Indication: Angina pectoris
     Route: 048
     Dates: start: 20190802
  7. NEXIUM [Concomitant]
     Active Substance: ESOMEPRAZOLE MAGNESIUM
     Indication: Prophylaxis
     Route: 048
     Dates: start: 20170601
  8. LASIX [Concomitant]
     Active Substance: FUROSEMIDE
     Indication: Angina pectoris
     Route: 048
     Dates: start: 20190802
  9. DIETARY SUPPLEMENT\HERBALS\MILK THISTLE [Concomitant]
     Active Substance: DIETARY SUPPLEMENT\HERBALS\MILK THISTLE
     Indication: Hepatocellular carcinoma
     Route: 048
     Dates: start: 20190802
  10. URSODIOL [Concomitant]
     Active Substance: URSODIOL
     Indication: Hepatocellular carcinoma
     Route: 048
     Dates: start: 20190802
  11. METHOTREXATE [Concomitant]
     Active Substance: METHOTREXATE
     Indication: Rheumatoid arthritis
     Route: 048
  12. METHYLPREDNISOLONE [Concomitant]
     Active Substance: METHYLPREDNISOLONE
     Indication: Rheumatoid arthritis
     Route: 048

REACTIONS (1)
  - Rectal haemorrhage [Recovered/Resolved]

NARRATIVE: CASE EVENT DATE: 20190911
